FAERS Safety Report 16734636 (Version 1)
Quarter: 2019Q3

REPORT INFORMATION
  Report Type: Report from Study
  Country: US (occurrence: US)
  Receive Date: 20190823
  Receipt Date: 20190823
  Transmission Date: 20191005
  Serious: Yes (Hospitalization)
  Sender: FDA-Public Use
  Company Number: PHEH2019US034440

PATIENT
  Sex: Male

DRUGS (1)
  1. COSENTYX [Suspect]
     Active Substance: SECUKINUMAB
     Indication: PSORIASIS
     Dosage: 300 MG (LOADING DOSES 0,1,2 3 AND 4, THEN ONCE EVERY 4 WEEKS), UNK
     Route: 058
     Dates: start: 20190621

REACTIONS (2)
  - Nephrolithiasis [Unknown]
  - Dyspnoea [Unknown]
